FAERS Safety Report 25769031 (Version 1)
Quarter: 2025Q3

REPORT INFORMATION
  Report Type: Spontaneous
  Country: PS (occurrence: PS)
  Receive Date: 20250905
  Receipt Date: 20250905
  Transmission Date: 20251021
  Serious: Yes (Other)
  Sender: PURDUE
  Company Number: PS-PURDUE-USA-2025-0320253

PATIENT
  Age: 44 Year
  Sex: Male

DRUGS (2)
  1. THEOPHYLLINE ANHYDROUS [Suspect]
     Active Substance: THEOPHYLLINE ANHYDROUS
     Indication: Asthma
     Route: 065
  2. MONTELUKAST [Suspect]
     Active Substance: MONTELUKAST
     Indication: Asthma
     Route: 065

REACTIONS (5)
  - Hypereosinophilic syndrome [Unknown]
  - Rectal haemorrhage [Unknown]
  - Abnormal loss of weight [Unknown]
  - Constipation [Unknown]
  - Diarrhoea [Unknown]
